FAERS Safety Report 4735446-5 (Version None)
Quarter: 2005Q3

REPORT INFORMATION
  Report Type: 
  Country: None (occurrence: None)
  Receive Date: 20050805
  Receipt Date: 20050726
  Transmission Date: 20060218
  Serious: Yes (Other)
  Sender: FDA-Public Use
  Company Number: CA-JNJFOC-20050502869

PATIENT
  Sex: Female
  Weight: 62 kg

DRUGS (8)
  1. REMICADE [Suspect]
     Route: 042
  2. REMICADE [Suspect]
     Route: 042
  3. REMICADE [Suspect]
     Indication: CROHN'S DISEASE
     Route: 042
  4. METHYLTREXATE [Concomitant]
  5. DEPOPREVA [Concomitant]
  6. PANTOPRAZOLE SODIUM [Concomitant]
  7. FOLIC ACID [Concomitant]
  8. TYLENOL (CAPLET) [Concomitant]

REACTIONS (2)
  - INTESTINAL OPERATION [None]
  - MIGRAINE [None]
